FAERS Safety Report 6922040-0 (Version None)
Quarter: 2010Q3

REPORT INFORMATION
  Report Type: 
  Country: None (occurrence: None)
  Receive Date: 20100812
  Receipt Date: 20100805
  Transmission Date: 20110219
  Serious: Yes (Death, Hospitalization)
  Sender: FDA-Public Use
  Company Number: CA-ALLERGAN-1010236US

PATIENT
  Age: 81 Year
  Sex: Female
  Weight: 53 kg

DRUGS (6)
  1. BOTOX [Suspect]
     Indication: PRODUCT USED FOR UNKNOWN INDICATION
     Dosage: 200 UNITS, SINGLE
     Route: 030
  2. ALENDRONATE SODIUM [Concomitant]
     Route: 048
  3. APO-PRIMIDONE [Concomitant]
     Indication: PRODUCT USED FOR UNKNOWN INDICATION
     Route: 048
  4. INDERAL LA [Concomitant]
     Route: 048
  5. LISINOPRIL [Concomitant]
     Route: 048
  6. WARFARIN [Concomitant]
     Route: 048

REACTIONS (10)
  - ABDOMINAL DISTENSION [None]
  - CARDIAC ARREST [None]
  - DYSPHAGIA [None]
  - DYSPNOEA [None]
  - HYPONATRAEMIA [None]
  - INTESTINAL ISCHAEMIA [None]
  - MULTI-ORGAN FAILURE [None]
  - PNEUMONIA ASPIRATION [None]
  - PYREXIA [None]
  - SEPSIS [None]
